APPROVED DRUG PRODUCT: PROPRANOLOL HYDROCHLORIDE
Active Ingredient: PROPRANOLOL HYDROCHLORIDE
Strength: 160MG
Dosage Form/Route: CAPSULE, EXTENDED RELEASE;ORAL
Application: A072502 | Product #001
Applicant: INWOOD LABORATORIES INC SUB FOREST LABORATORIES INC
Approved: Apr 11, 1989 | RLD: No | RS: No | Type: DISCN